FAERS Safety Report 5816956-6 (Version None)
Quarter: 2008Q3

REPORT INFORMATION
  Report Type: 
  Country: None (occurrence: None)
  Receive Date: 20080722
  Receipt Date: 20080711
  Transmission Date: 20090109
  Serious: Yes (Other)
  Sender: FDA-Public Use
  Company Number: PHBS2008GT00510

PATIENT
  Age: 74 Year
  Sex: Female

DRUGS (4)
  1. EXFORGE [Suspect]
     Indication: HYPERTENSION
     Dosage: VALS 160 / AMLO 5 MG/DAY
     Route: 048
     Dates: start: 20071001, end: 20071101
  2. EXFORGE [Suspect]
     Dosage: VALS 160 / AMLO 10 MG/DAY
     Route: 048
     Dates: start: 20071101
  3. METFORMIN HCL [Concomitant]
     Dosage: 850 MG/DAY
     Route: 048
  4. GLIBENCLAMIDE [Concomitant]
     Dosage: 5 MG/DAY
     Route: 048

REACTIONS (7)
  - ATRIAL FIBRILLATION [None]
  - EXTRASYSTOLES [None]
  - HYPERTENSIVE CARDIOMYOPATHY [None]
  - LEFT VENTRICULAR HYPERTROPHY [None]
  - OEDEMA PERIPHERAL [None]
  - PALPITATIONS [None]
  - VENTRICULAR EXTRASYSTOLES [None]
